FAERS Safety Report 10528594 (Version 1)
Quarter: 2014Q4

REPORT INFORMATION
  Report Type: Spontaneous
  Country: JP (occurrence: JP)
  Receive Date: 20141020
  Receipt Date: 20141020
  Transmission Date: 20150528
  Serious: Yes (Other)
  Sender: FDA-Public Use
  Company Number: JP-TEVA-515548ISR

PATIENT

DRUGS (1)
  1. LOPERAMIDE HCL [Suspect]
     Active Substance: LOPERAMIDE HYDROCHLORIDE
     Dosage: INTAKE FOR OVER A YEAR
     Route: 048

REACTIONS (1)
  - Dementia [Unknown]
